FAERS Safety Report 15278381 (Version 1)
Quarter: 2018Q3

REPORT INFORMATION
  Report Type: Spontaneous
  Country: PL (occurrence: PL)
  Receive Date: 20180814
  Receipt Date: 20180814
  Transmission Date: 20181010
  Serious: Yes (Life-Threatening, Hospitalization, Disabling, Other)
  Sender: FDA-Public Use
  Company Number: PHHY2017PL204532

PATIENT
  Age: 62 Year
  Sex: Female
  Weight: 137 kg

DRUGS (10)
  1. ZOLPIDEM TARTRATE. [Interacting]
     Active Substance: ZOLPIDEM TARTRATE
     Indication: INSOMNIA
     Dosage: 10 MG,HS
     Route: 048
  2. VENLAFAXINE [Interacting]
     Active Substance: VENLAFAXINE HYDROCHLORIDE
     Indication: DEPRESSION
     Dosage: 150 MG,QD
     Route: 048
  3. GINKGO BILOBA EXTRACT [Concomitant]
     Active Substance: GINKGO
     Indication: PRODUCT USED FOR UNKNOWN INDICATION
     Route: 065
  4. MOCLOBEMIDE [Interacting]
     Active Substance: MOCLOBEMIDE
     Indication: DEPRESSION
     Dosage: 150 MG, QHS
     Route: 065
  5. ESCITALOPRAM [Suspect]
     Active Substance: ESCITALOPRAM OXALATE
     Indication: PRODUCT USED FOR UNKNOWN INDICATION
     Route: 065
  6. WARFARIN [Concomitant]
     Active Substance: WARFARIN
     Indication: PRODUCT USED FOR UNKNOWN INDICATION
     Route: 065
  7. METOPROLOL TARTRATE. [Suspect]
     Active Substance: METOPROLOL TARTRATE
     Indication: ATRIAL TACHYCARDIA
     Dosage: UNK
     Route: 065
  8. TRAZODONE [Suspect]
     Active Substance: TRAZODONE HYDROCHLORIDE
     Indication: PRODUCT USED FOR UNKNOWN INDICATION
     Route: 065
  9. SERTRALINE [Interacting]
     Active Substance: SERTRALINE HYDROCHLORIDE
     Indication: DEPRESSION
     Dosage: 50 MG, QHS
     Route: 065
  10. SOTALOL. [Concomitant]
     Active Substance: SOTALOL
     Indication: PRODUCT USED FOR UNKNOWN INDICATION
     Route: 065

REACTIONS (14)
  - Apallic syndrome [Unknown]
  - Syncope [Recovered/Resolved]
  - Middle insomnia [Recovered/Resolved]
  - Drug ineffective [Unknown]
  - Fatigue [Unknown]
  - Arrhythmia [Recovering/Resolving]
  - Initial insomnia [Recovering/Resolving]
  - Insomnia [Recovered/Resolved]
  - Atrial tachycardia [Recovered/Resolved]
  - Drug interaction [Recovered/Resolved]
  - Fatigue [Recovered/Resolved]
  - Electrocardiogram QT prolonged [Recovered/Resolved]
  - Palpitations [Recovered/Resolved]
  - Ischaemic stroke [Unknown]
